FAERS Safety Report 12964173 (Version 2)
Quarter: 2016Q4

REPORT INFORMATION
  Report Type: Report from Study
  Country: US (occurrence: US)
  Receive Date: 20161122
  Receipt Date: 20161219
  Transmission Date: 20170207
  Serious: Yes (Other)
  Sender: FDA-Public Use
  Company Number: US-MALLINCKRODT-T201605082

PATIENT
  Age: 40 Year
  Sex: Female

DRUGS (2)
  1. REPOSITORY CORTICOTROPIN INJECTION [Suspect]
     Active Substance: CORTICOTROPIN
     Indication: RHEUMATOID ARTHRITIS
     Dosage: 80 UNITS TWICE WEEKLY (TUES. AND FRI.)
     Route: 058
     Dates: start: 20160816
  2. REPOSITORY CORTICOTROPIN INJECTION [Suspect]
     Active Substance: CORTICOTROPIN
     Indication: SARCOIDOSIS
     Dosage: 80 UNITS / 1 ML, TUES/FRI/SUN
     Route: 058
     Dates: start: 20160816

REACTIONS (9)
  - Malaise [Unknown]
  - Condition aggravated [Unknown]
  - Discomfort [Unknown]
  - Gastrointestinal inflammation [Unknown]
  - Gastrooesophageal reflux disease [Recovering/Resolving]
  - Thirst [Unknown]
  - Nodule [Unknown]
  - Weight decreased [Unknown]
  - Productive cough [Unknown]

NARRATIVE: CASE EVENT DATE: 201607
